FAERS Safety Report 8093374-4 (Version None)
Quarter: 2012Q1

REPORT INFORMATION
  Report Type: 
  Country: None (occurrence: None)
  Receive Date: 20120131
  Receipt Date: 20120126
  Transmission Date: 20120608
  Serious: Yes (Death)
  Sender: FDA-Public Use
  Company Number: US-PFIZER INC-2012021777

PATIENT
  Age: 40 Year
  Sex: Female
  Weight: 64.5 kg

DRUGS (2)
  1. TYVASO [Suspect]
     Indication: COR PULMONALE CHRONIC
     Dosage: 18-54 MICROGRAM (3-9 BREATHS), FOUR TIMES A DAY
     Route: 055
     Dates: start: 20110520
  2. REVATIO [Suspect]
     Dosage: UNK

REACTIONS (1)
  - DEATH [None]
